FAERS Safety Report 4791102-9 (Version None)
Quarter: 2005Q4

REPORT INFORMATION
  Report Type: 
  Country: None (occurrence: None)
  Receive Date: 20051005
  Receipt Date: 20050915
  Transmission Date: 20060501
  Serious: Yes (Other)
  Sender: FDA-Public Use
  Company Number: FR_050907132

PATIENT
  Age: 70 Year
  Sex: Female

DRUGS (1)
  1. RALOXIFENE HCL [Suspect]
     Dates: start: 20040101

REACTIONS (1)
  - RETINAL HAEMORRHAGE [None]
